FAERS Safety Report 25866933 (Version 1)
Quarter: 2025Q4

REPORT INFORMATION
  Report Type: Spontaneous
  Country: US (occurrence: US)
  Receive Date: 20251001
  Receipt Date: 20251001
  Transmission Date: 20260117
  Serious: Yes (Death, Other)
  Sender: CIPLA
  Company Number: US-BMS-IMIDS-REMS-SI-1758216929417

PATIENT

DRUGS (1)
  1. LENALIDOMIDE [Suspect]
     Active Substance: LENALIDOMIDE
     Indication: Product used for unknown indication
     Dosage: 5 MILLIGRAM
     Route: 065
     Dates: start: 20241101

REACTIONS (2)
  - Gallbladder disorder [Fatal]
  - Sepsis [Fatal]

NARRATIVE: CASE EVENT DATE: 20250101
